FAERS Safety Report 10097563 (Version 2)
Quarter: 2014Q2

REPORT INFORMATION
  Report Type: Spontaneous
  Country: US (occurrence: US)
  Receive Date: 20140423
  Receipt Date: 20140512
  Transmission Date: 20141212
  Serious: Yes (Hospitalization, Other)
  Sender: FDA-Public Use
  Company Number: US-BIOGENIDEC-2014BI036662

PATIENT
  Age: 52 Year
  Sex: Female

DRUGS (1)
  1. TECFIDERA [Suspect]
     Indication: MULTIPLE SCLEROSIS
     Route: 048
     Dates: start: 20140411, end: 20140411

REACTIONS (14)
  - Adverse drug reaction [Unknown]
  - Multiple sclerosis relapse [Unknown]
  - Convulsion [Not Recovered/Not Resolved]
  - Fall [Recovered/Resolved]
  - Vertigo [Not Recovered/Not Resolved]
  - Dehydration [Not Recovered/Not Resolved]
  - Blood magnesium decreased [Unknown]
  - Anxiety [Not Recovered/Not Resolved]
  - Speech disorder [Not Recovered/Not Resolved]
  - Diarrhoea [Recovered/Resolved]
  - Panic attack [Unknown]
  - Anger [Unknown]
  - Blood glucose fluctuation [Unknown]
  - Multiple sclerosis [Unknown]
